FAERS Safety Report 12979485 (Version 1)
Quarter: 2016Q4

REPORT INFORMATION
  Report Type: Spontaneous
  Country: IE (occurrence: IE)
  Receive Date: 20161128
  Receipt Date: 20161128
  Transmission Date: 20170207
  Serious: Yes (Hospitalization, Other)
  Sender: FDA-Public Use
  Company Number: IE-PFIZER INC-2016546508

PATIENT
  Age: 35 Year
  Sex: Female

DRUGS (4)
  1. LITHIUM. [Suspect]
     Active Substance: LITHIUM
  2. DECAPEPTYL /00975903/ [Suspect]
     Active Substance: TRIPTORELIN PAMOATE
     Indication: MENSTRUAL DISCOMFORT
     Dosage: 11.25 MG, UNK
     Dates: end: 20160605
  3. OVRANETTE [Suspect]
     Active Substance: ETHINYL ESTRADIOL\LEVONORGESTREL
     Dosage: UNK
  4. DEPO-PROVERA [Suspect]
     Active Substance: MEDROXYPROGESTERONE ACETATE
     Dosage: UNK

REACTIONS (1)
  - Bipolar disorder [Unknown]

NARRATIVE: CASE EVENT DATE: 2016
